FAERS Safety Report 18821529 (Version 1)
Quarter: 2021Q1

REPORT INFORMATION
  Report Type: Spontaneous
  Country: US (occurrence: US)
  Receive Date: 20210202
  Receipt Date: 20210202
  Transmission Date: 20210419
  Serious: Yes (Hospitalization, Other)
  Sender: FDA-Public Use
  Company Number: US-PFIZER INC-2021076159

PATIENT
  Age: 76 Year
  Sex: Female

DRUGS (4)
  1. CABERGOLINE. [Concomitant]
     Active Substance: CABERGOLINE
     Dosage: UNK
  2. SOMAVERT [Suspect]
     Active Substance: PEGVISOMANT
     Dosage: 10 MG, ALTERNATE DAY
     Route: 058
     Dates: start: 20201101
  3. SOMATULINE AUTOGEL [Concomitant]
     Active Substance: LANREOTIDE ACETATE
     Dosage: UNK
  4. SOMAVERT [Suspect]
     Active Substance: PEGVISOMANT
     Indication: ACROMEGALY
     Dosage: 10 MG, ALTERNATE DAY (EVERY OTHER DAY )
     Route: 058
     Dates: start: 20110101, end: 20200501

REACTIONS (2)
  - Pituitary tumour [Recovered/Resolved]
  - Dementia [Unknown]

NARRATIVE: CASE EVENT DATE: 20110101
